FAERS Safety Report 8537938-X (Version None)
Quarter: 2012Q3

REPORT INFORMATION
  Report Type: 
  Country: None (occurrence: None)
  Receive Date: 20120725
  Receipt Date: 20120723
  Transmission Date: 20120928
  Serious: Yes (Other)
  Sender: FDA-Public Use
  Company Number: DE-GLAXOSMITHKLINE-D0076465A

PATIENT
  Sex: Male

DRUGS (1)
  1. FLUTICASONE FUROATE [Suspect]
     Route: 045

REACTIONS (2)
  - RHABDOMYOLYSIS [None]
  - MYOPATHY [None]
